FAERS Safety Report 5302920-2 (Version None)
Quarter: 2007Q2

REPORT INFORMATION
  Report Type: 
  Country: None (occurrence: None)
  Receive Date: 20070413
  Receipt Date: 20070405
  Transmission Date: 20071010
  Serious: Yes (Hospitalization)
  Sender: FDA-Public Use
  Company Number: 2007BI003033

PATIENT
  Age: 54 Year
  Sex: Female
  Weight: 57.1532 kg

DRUGS (1)
  1. AVONEX [Suspect]
     Indication: MULTIPLE SCLEROSIS
     Dosage: 39 UG;QW;IM
     Route: 030
     Dates: start: 20041231

REACTIONS (3)
  - PANCREATITIS [None]
  - SCAR EXCISION [None]
  - URINARY TRACT INFECTION [None]
